FAERS Safety Report 4664387-7 (Version None)
Quarter: 2005Q2

REPORT INFORMATION
  Report Type: 
  Country: None (occurrence: None)
  Receive Date: 20050518
  Receipt Date: 20050105
  Transmission Date: 20051028
  Serious: Yes (Death)
  Sender: FDA-Public Use
  Company Number: US-MERCK-0501USA00501

PATIENT
  Age: 73 Year
  Sex: Male
  Weight: 74 kg

DRUGS (5)
  1. VIOXX [Suspect]
     Indication: NECK PAIN
     Route: 048
     Dates: start: 20030123, end: 20030219
  2. VIOXX [Suspect]
     Route: 048
     Dates: start: 20030219, end: 20030901
  3. VIOXX [Suspect]
     Route: 048
  4. ATIVAN [Concomitant]
     Route: 048
  5. PAXIL [Concomitant]
     Route: 048

REACTIONS (6)
  - ARTERIOSCLEROSIS [None]
  - CARDIOMEGALY [None]
  - HEPATITIS [None]
  - HYPERTENSIVE HEART DISEASE [None]
  - NEPHROSCLEROSIS [None]
  - SUDDEN DEATH [None]
